FAERS Safety Report 4566946-9 (Version None)
Quarter: 2005Q1

REPORT INFORMATION
  Report Type: 
  Country: None (occurrence: None)
  Receive Date: 20050201
  Receipt Date: 20030425
  Transmission Date: 20050727
  Serious: Yes (Other)
  Sender: FDA-Public Use
  Company Number: US-BRISTOL-MYERS SQUIBB COMPANY-12258786

PATIENT
  Age: 59 Year
  Sex: Female

DRUGS (8)
  1. STADOL [Suspect]
     Indication: PAIN
     Dates: start: 19970101, end: 20020101
  2. STADOL [Suspect]
     Indication: HEADACHE
     Dates: start: 19970101, end: 20020101
  3. VIOXX [Concomitant]
  4. PROPOXYPHENE [Concomitant]
  5. HYDROCODONE [Concomitant]
  6. LIPITOR [Concomitant]
  7. GUANFACINE HCL [Concomitant]
  8. VISTARIL [Concomitant]

REACTIONS (1)
  - DEPENDENCE [None]
